FAERS Safety Report 5600293-9 (Version None)
Quarter: 2007Q4

REPORT INFORMATION
  Report Type: 
  Country: None (occurrence: None)
  Receive Date: 20071227
  Receipt Date: 20070725
  Transmission Date: 20080405
  Serious: Yes (Other)
  Sender: FDA-Public Use
  Company Number: 2007S1000194

PATIENT
  Age: 71 Year
  Weight: 154.3 kg

DRUGS (1)
  1. ACITRETIN [Suspect]
     Indication: LEUKOPENIA
     Dosage: 10 MG;QD;PO
     Route: 048
     Dates: start: 20061101

REACTIONS (2)
  - LEUKOPENIA [None]
  - NEUTROPENIA [None]
